FAERS Safety Report 9009736 (Version 1)
Quarter: 2013Q1

REPORT INFORMATION
  Report Type: Report from Study
  Country: US (occurrence: US)
  Receive Date: 20130110
  Receipt Date: 20130110
  Transmission Date: 20140127
  Serious: Yes (Other)
  Sender: FDA-Public Use
  Company Number: US-MYLANLABS-2013S1000160

PATIENT
  Age: 62 Year
  Sex: Female

DRUGS (1)
  1. AMNESTEEM CAPSULES [Suspect]

REACTIONS (5)
  - Suicidal ideation [Not Recovered/Not Resolved]
  - Depression [Not Recovered/Not Resolved]
  - Headache [Not Recovered/Not Resolved]
  - Gingival recession [Not Recovered/Not Resolved]
  - Lip exfoliation [Not Recovered/Not Resolved]
